FAERS Safety Report 19469160 (Version 1)
Quarter: 2021Q2

REPORT INFORMATION
  Report Type: Spontaneous
  Country: ES (occurrence: ES)
  Receive Date: 20210629
  Receipt Date: 20210629
  Transmission Date: 20210717
  Serious: Yes (Hospitalization)
  Sender: FDA-Public Use
  Company Number: ES-ORGANON-O2106ESP002024

PATIENT
  Age: 26 Year
  Sex: Female

DRUGS (1)
  1. NUVARING [Suspect]
     Active Substance: ETHINYL ESTRADIOL\ETONOGESTREL
     Indication: POLYCYSTIC OVARIES
     Dosage: STRENGTH REPORTED AS 0.120 MG/0.015 MG EVERY 24 HOURS VAGINAL LIBERATION SYSTEM, 1 VAGINAL DEVICE.
     Route: 067
     Dates: start: 20190604, end: 20210602

REACTIONS (2)
  - Migrainous infarction [Recovering/Resolving]
  - Migraine with aura [Recovering/Resolving]

NARRATIVE: CASE EVENT DATE: 20210602
